FAERS Safety Report 24024207 (Version 2)
Quarter: 2024Q3

REPORT INFORMATION
  Report Type: Report from Study
  Country: PH (occurrence: PH)
  Receive Date: 20240627
  Receipt Date: 20240710
  Transmission Date: 20241016
  Serious: No
  Sender: ROCHE
  Company Number: PH-ROCHE-3465792

PATIENT
  Age: 66 Year
  Sex: Female
  Weight: 45.0 kg

DRUGS (2)
  1. PHESGO [Suspect]
     Active Substance: HYALURONIDASE-ZZXF\PERTUZUMAB\TRASTUZUMAB
     Indication: HER2 positive breast cancer
     Route: 042
  2. LAPATINIB [Concomitant]
     Active Substance: LAPATINIB

REACTIONS (1)
  - Dyspnoea [Unknown]
